FAERS Safety Report 7464407-0 (Version None)
Quarter: 2011Q2

REPORT INFORMATION
  Report Type: 
  Country: None (occurrence: None)
  Receive Date: 20110509
  Receipt Date: 20110503
  Transmission Date: 20111010
  Serious: Yes (Other)
  Sender: FDA-Public Use
  Company Number: US-PFIZER INC-2011039611

PATIENT
  Sex: Male

DRUGS (7)
  1. CITALOPRAM [Concomitant]
     Indication: ANXIETY
  2. CHANTIX [Suspect]
     Indication: SMOKING CESSATION THERAPY
     Dosage: 0.5 MG AND 1 MG
     Route: 048
     Dates: start: 20070426, end: 20080207
  3. LISINOPRIL [Concomitant]
     Indication: HYPERTENSION
     Dosage: UNK
     Dates: start: 20030101
  4. MELOXICAM [Concomitant]
     Indication: ARTHRITIS
     Dosage: UNK
     Dates: start: 20060101, end: 20080101
  5. CITALOPRAM [Concomitant]
     Indication: DEPRESSION
     Dosage: UNK
     Dates: start: 20060101
  6. MIRTAZAPINE [Concomitant]
     Indication: POST-TRAUMATIC STRESS DISORDER
     Dosage: UNK
     Dates: start: 20030101, end: 20090101
  7. MIRTAZAPINE [Concomitant]
     Indication: DEPRESSION

REACTIONS (6)
  - NIGHTMARE [None]
  - DEPRESSION [None]
  - AGGRESSION [None]
  - INSOMNIA [None]
  - ANXIETY [None]
  - ANGER [None]
